FAERS Safety Report 5674907-1 (Version None)
Quarter: 2008Q1

REPORT INFORMATION
  Report Type: 
  Country: None (occurrence: None)
  Receive Date: 20080319
  Receipt Date: 20080319
  Transmission Date: 20080703
  Serious: Yes (Hospitalization)
  Sender: FDA-Public Use
  Company Number: None

PATIENT
  Age: 60 Year
  Sex: Male
  Weight: 90.9 kg

DRUGS (1)
  1. INVANZ [Suspect]
     Indication: CELLULITIS
     Dosage: 1000 MG Q 24 HOURS IV  4 DOSES
     Route: 042
     Dates: start: 20071204, end: 20071207

REACTIONS (1)
  - GRAND MAL CONVULSION [None]
